FAERS Safety Report 12998179 (Version 1)
Quarter: 2016Q4

REPORT INFORMATION
  Report Type: Spontaneous
  Country: US (occurrence: US)
  Receive Date: 20161202
  Receipt Date: 20161202
  Transmission Date: 20170207
  Serious: Yes (Hospitalization)
  Sender: FDA-Public Use
  Company Number: None

PATIENT
  Age: 61 Year
  Sex: Female
  Weight: 90.5 kg

DRUGS (1)
  1. MEMANTINE HYDROCHLORIDE. [Suspect]
     Active Substance: MEMANTINE HYDROCHLORIDE
     Dates: end: 20161117

REACTIONS (9)
  - Oxygen saturation decreased [None]
  - Nausea [None]
  - Diarrhoea [None]
  - Malaise [None]
  - Blood creatinine increased [None]
  - Tremor [None]
  - Dizziness [None]
  - Presyncope [None]
  - Dyspnoea [None]

NARRATIVE: CASE EVENT DATE: 20161117
